FAERS Safety Report 20114190 (Version 2)
Quarter: 2021Q4

REPORT INFORMATION
  Report Type: Report from Study
  Country: GB (occurrence: GB)
  Receive Date: 20211125
  Receipt Date: 20211209
  Transmission Date: 20220303
  Serious: Yes (Other)
  Sender: FDA-Public Use
  Company Number: GB-ViiV Healthcare Limited-GB2021GSK203110

PATIENT
  Age: 39 Year
  Sex: Female
  Weight: 33.5 kg

DRUGS (21)
  1. CABOTEGRAVIR [Suspect]
     Active Substance: CABOTEGRAVIR
     Indication: HIV infection
     Dosage: 600 MG(3 ML, 2 VIAL) (1 AND A HALF VIALS USED(400MG/2ML))
     Route: 030
     Dates: start: 20210901, end: 20210924
  2. RILPIVIRINE [Suspect]
     Active Substance: RILPIVIRINE
     Indication: HIV infection
     Dosage: 900 MG(1 AND A HALF VIALS USED(400MG/2ML))
     Route: 030
     Dates: start: 20210901, end: 20210924
  3. ZIDOVUDINE [Suspect]
     Active Substance: ZIDOVUDINE
     Indication: HIV infection
     Dosage: 30 MG, 4 HOURLY
     Route: 042
     Dates: start: 20210909, end: 20210924
  4. CLARITHROMYCIN [Suspect]
     Active Substance: CLARITHROMYCIN
     Indication: Mycobacterium avium complex infection
     Dosage: 500 MG, BID
     Route: 042
     Dates: start: 20210610
  5. ACETAMINOPHEN [Suspect]
     Active Substance: ACETAMINOPHEN
     Indication: Pain
     Dosage: 500 MG, QID
     Route: 042
     Dates: start: 202106, end: 20210924
  6. AMIKACIN [Concomitant]
     Active Substance: AMIKACIN
     Indication: Mycobacterium avium complex infection
     Dosage: 500 MG, QD
     Route: 042
     Dates: start: 20210501
  7. ETHAMBUTOL [Concomitant]
     Active Substance: ETHAMBUTOL HYDROCHLORIDE
     Indication: Mycobacterium avium complex infection
     Dosage: 500 MG, QD
     Route: 048
     Dates: start: 20210501
  8. CIPROFLOXACIN [Concomitant]
     Active Substance: CIPROFLOXACIN
     Indication: Mycobacterium avium complex infection
     Dosage: 500 MG, BID (PLUS EARLIER COURSE)
     Route: 048
     Dates: start: 20210809
  9. SULFAMETHOXAZOLE\TRIMETHOPRIM [Concomitant]
     Active Substance: SULFAMETHOXAZOLE\TRIMETHOPRIM
     Indication: Prophylaxis
     Dosage: 480 MG, QD(INTRAVENOUS AND ORAL)
     Route: 048
     Dates: start: 202105
  10. NYSTATIN [Concomitant]
     Active Substance: NYSTATIN
     Indication: Oral candidiasis
     Dosage: 1 ML, QID
     Route: 048
     Dates: start: 202108
  11. DOLUTEGRAVIR [Concomitant]
     Active Substance: DOLUTEGRAVIR
     Indication: HIV infection
     Dosage: 50 MG, QD
     Route: 048
     Dates: start: 202101, end: 20210901
  12. BICTEGRAVIR + EMTRICITABINE + TENOFOVIR ALAFENAMIDE FUMARATE [Concomitant]
     Indication: HIV infection
     Dosage: 25 MG, QD
     Route: 048
     Dates: start: 202101, end: 20210901
  13. MIRTAZAPINE [Concomitant]
     Active Substance: MIRTAZAPINE
     Indication: Antidepressant therapy
     Dosage: 15 MG, QD
     Route: 048
     Dates: start: 20210801, end: 20210903
  14. FENTANYL TRANSDERMAL SYSTEM [Concomitant]
     Active Substance: FENTANYL
     Indication: Abdominal pain
     Dosage: 12 UG/HR, 72 HOURLY
     Route: 061
     Dates: start: 20210906
  15. MORPHINE [Concomitant]
     Active Substance: MORPHINE
     Indication: Abdominal pain
     Dosage: 2.5 MG, PRN
     Route: 042
     Dates: start: 202105
  16. DOCUSATE [Concomitant]
     Active Substance: DOCUSATE
     Indication: Constipation
     Dosage: 200 MG, BID
     Route: 048
     Dates: start: 202105
  17. LACTULOSE [Concomitant]
     Active Substance: LACTULOSE
     Indication: Constipation
     Dosage: 20 ML, Z (TDS)
     Route: 048
     Dates: start: 202106
  18. CYCLIZINE [Concomitant]
     Active Substance: CYCLIZINE
     Indication: Product used for unknown indication
     Dosage: STOPPED
     Route: 042
  19. HYDROCORTISONE [Concomitant]
     Active Substance: HYDROCORTISONE
     Indication: Immune reconstitution inflammatory syndrome
     Dosage: 40 MG, BID
     Route: 042
     Dates: start: 20210913
  20. HYDROCORTISONE [Concomitant]
     Active Substance: HYDROCORTISONE
     Indication: Abdominal pain
  21. OMEPRAZOLE [Concomitant]
     Active Substance: OMEPRAZOLE
     Indication: Gastrointestinal disorder prophylaxis
     Dosage: 20 MG, QD
     Route: 042
     Dates: start: 20210913

REACTIONS (4)
  - Alanine aminotransferase increased [Recovered/Resolved]
  - Hepatic function abnormal [Recovered/Resolved]
  - Alanine aminotransferase increased [Recovering/Resolving]
  - Hepatic function abnormal [Recovering/Resolving]

NARRATIVE: CASE EVENT DATE: 20210914
